FAERS Safety Report 6901786-4 (Version None)
Quarter: 2010Q3

REPORT INFORMATION
  Report Type: 
  Country: None (occurrence: None)
  Receive Date: 20100802
  Receipt Date: 20100802
  Transmission Date: 20110219
  Serious: Yes (Other)
  Sender: FDA-Public Use
  Company Number: None

PATIENT
  Age: 51 Year
  Sex: Female
  Weight: 63.5036 kg

DRUGS (1)
  1. PEGASYS [Suspect]
     Indication: HEPATITIS C
     Dosage: 180 IU WEEKLY SQ
     Route: 058
     Dates: start: 20080201, end: 20081129

REACTIONS (14)
  - ALOPECIA [None]
  - ANAEMIA [None]
  - ANXIETY [None]
  - CHILLS [None]
  - DIARRHOEA [None]
  - DISTURBANCE IN ATTENTION [None]
  - LOSS OF EMPLOYMENT [None]
  - LYMPHOCYTE COUNT DECREASED [None]
  - MUSCLE ATROPHY [None]
  - NAUSEA [None]
  - NEUTROPHIL COUNT DECREASED [None]
  - PLATELET COUNT DECREASED [None]
  - PYREXIA [None]
  - THINKING ABNORMAL [None]
